FAERS Safety Report 25445140 (Version 1)
Quarter: 2025Q2

REPORT INFORMATION
  Report Type: Spontaneous
  Country: US (occurrence: None)
  Receive Date: 20250616
  Receipt Date: 20250616
  Transmission Date: 20250716
  Serious: Yes (Other)
  Sender: FDA-CTU
  Company Number: None

PATIENT
  Age: 38 Year
  Sex: Male
  Weight: 102.15 kg

DRUGS (2)
  1. ZICAM COLD REMEDY [Suspect]
     Active Substance: HOMEOPATHICS\ZINC ACETATE\ZINC GLUCONATE
     Indication: Nasopharyngitis
     Dosage: OTHER QUANTITY : 20 INHALATION(S);?FREQUENCY : TWICE A DAY;?
     Route: 055
     Dates: start: 20250604, end: 20250607
  2. CLARITIN-D NOS [Concomitant]
     Active Substance: LORATADINE\PSEUDOEPHEDRINE SULFATE

REACTIONS (5)
  - Nasal congestion [None]
  - Secretion discharge [None]
  - Oropharyngeal pain [None]
  - Dry throat [None]
  - Cough [None]

NARRATIVE: CASE EVENT DATE: 20250605
